FAERS Safety Report 7776657-4 (Version None)
Quarter: 2011Q3

REPORT INFORMATION
  Report Type: 
  Country: None (occurrence: None)
  Receive Date: 20110926
  Receipt Date: 20100825
  Transmission Date: 20111222
  Serious: No
  Sender: FDA-Public Use
  Company Number: GB-BAYER-201032867NA

PATIENT
  Age: 40 Year
  Sex: Female

DRUGS (2)
  1. IBUPROFEN [Concomitant]
  2. BETASERON [Suspect]
     Indication: MULTIPLE SCLEROSIS

REACTIONS (1)
  - INJECTION SITE URTICARIA [None]
